FAERS Safety Report 7394468-9 (Version None)
Quarter: 2011Q2

REPORT INFORMATION
  Report Type: 
  Country: None (occurrence: None)
  Receive Date: 20110405
  Receipt Date: 20110322
  Transmission Date: 20111010
  Serious: Yes (Hospitalization)
  Sender: FDA-Public Use
  Company Number: PHHY2011MX24561

PATIENT
  Sex: Female

DRUGS (2)
  1. EXFORGE [Suspect]
     Indication: HYPERTENSION
     Dosage: 1 TABLET (160/5 MG) DAILY 5 MG OF AMLODIPIN), QD
     Route: 048
     Dates: start: 20100101, end: 20110306
  2. EXFORGE [Suspect]
     Dosage: 1 TABLET (160/5 MG) DAILY 5 MG OF AMLODIPIN), QD
     Route: 048
     Dates: start: 20110320

REACTIONS (2)
  - ABDOMINAL PAIN [None]
  - INGUINAL HERNIA, OBSTRUCTIVE [None]
